FAERS Safety Report 19742334 (Version 1)
Quarter: 2021Q3

REPORT INFORMATION
  Report Type: Spontaneous
  Country: PL (occurrence: PL)
  Receive Date: 20210824
  Receipt Date: 20210824
  Transmission Date: 20211014
  Serious: Yes (Other)
  Sender: FDA-Public Use
  Company Number: PL-MYLANLABS-2021M1054405

PATIENT
  Age: 62 Year
  Sex: Male

DRUGS (2)
  1. IMATINIB. [Suspect]
     Active Substance: IMATINIB MESYLATE
     Indication: CHRONIC MYELOID LEUKAEMIA
     Dosage: UNK
     Route: 065
  2. IMATINIB. [Suspect]
     Active Substance: IMATINIB MESYLATE
     Dosage: 400 MILLIGRAM
     Route: 065
     Dates: start: 201701, end: 201905

REACTIONS (4)
  - Cytogenetic analysis abnormal [Unknown]
  - Hypersensitivity [Unknown]
  - Loss of therapeutic response [Unknown]
  - Splenomegaly [Unknown]
